FAERS Safety Report 8620239-9 (Version None)
Quarter: 2012Q3

REPORT INFORMATION
  Report Type: 
  Country: None (occurrence: None)
  Receive Date: 20120824
  Receipt Date: 20120820
  Transmission Date: 20120928
  Serious: Yes (Other)
  Sender: FDA-Public Use
  Company Number: PHHY2012GB071869

PATIENT
  Age: 63 Year
  Sex: Male
  Weight: 91 kg

DRUGS (18)
  1. ACETAMINOPHEN AND CODEINE PHOSPHATE [Concomitant]
     Dates: start: 20120606
  2. OMEPRAZOLE [Concomitant]
     Dates: start: 20120424
  3. ALBUTEROL SULATE [Concomitant]
     Dates: start: 20120424
  4. DOXAZOSIN MESYLATE [Concomitant]
     Dates: start: 20120424
  5. DOXYCYCLINE HCL [Concomitant]
     Dates: start: 20120627, end: 20120705
  6. FLUTICASONE PROPIONATE/SALMETEROL [Concomitant]
     Dates: start: 20120424
  7. TIOTROPIUM [Concomitant]
     Dates: start: 20120424
  8. METFORMIN HCL [Suspect]
     Dates: start: 20120424
  9. NITROGLYCERIN [Concomitant]
     Dates: start: 20120606
  10. PERINDOPRIL ERBUMINE [Concomitant]
     Dates: start: 20120424
  11. AMITRIPTYLINE HCL [Concomitant]
     Dates: start: 20120614
  12. AMLODIPINE [Concomitant]
     Dates: start: 20120424
  13. SIMVASTATIN [Concomitant]
     Dates: start: 20120424
  14. ALLOPURINOL [Concomitant]
     Dates: start: 20120424
  15. CETIRIZINE [Concomitant]
     Dates: start: 20120424
  16. GAVISCON [Concomitant]
     Dates: start: 20120424
  17. GLICLAZIDE [Concomitant]
     Dates: start: 20120424
  18. MOMETASONE FUROATE [Concomitant]
     Dates: start: 20120424

REACTIONS (1)
  - HYPERSENSITIVITY [None]
